FAERS Safety Report 4664840-6 (Version None)
Quarter: 2005Q2

REPORT INFORMATION
  Report Type: 
  Country: None (occurrence: None)
  Receive Date: 20050517
  Receipt Date: 20050517
  Transmission Date: 20051028
  Serious: Yes (Life-Threatening, Hospitalization)
  Sender: FDA-Public Use
  Company Number: None

PATIENT
  Age: 67 Year
  Sex: Male
  Weight: 73.0291 kg

DRUGS (3)
  1. GEFITINIB 250MG [Suspect]
     Indication: LUNG NEOPLASM MALIGNANT
     Dosage: 250MG PO DAILY
     Route: 048
     Dates: start: 20040901
  2. SIMVASTATIN [Suspect]
     Indication: DYSLIPIDAEMIA
     Dosage: 40 MG PO DAILY
     Route: 048
     Dates: start: 19970901
  3. GEMFIBROZIL [Suspect]
     Indication: DYSLIPIDAEMIA
     Dosage: 600MG PO BID
     Route: 048
     Dates: start: 19950101

REACTIONS (7)
  - ASTHENIA [None]
  - BLOOD CREATINE PHOSPHOKINASE INCREASED [None]
  - CHROMATURIA [None]
  - HEPATOTOXICITY [None]
  - LIVER FUNCTION TEST ABNORMAL [None]
  - LUNG NEOPLASM MALIGNANT [None]
  - MYALGIA [None]
